FAERS Safety Report 12668900 (Version 1)
Quarter: 2016Q3

REPORT INFORMATION
  Report Type: Spontaneous
  Country: BR (occurrence: BR)
  Receive Date: 20160819
  Receipt Date: 20160819
  Transmission Date: 20161109
  Serious: Yes (Other)
  Sender: FDA-Public Use
  Company Number: BR-PFIZER INC-2016383061

PATIENT
  Age: 62 Year
  Sex: Male
  Weight: 89 kg

DRUGS (8)
  1. SIMVASTATIN. [Concomitant]
     Active Substance: SIMVASTATIN
     Indication: BLOOD CHOLESTEROL ABNORMAL
     Dosage: ONE IN THE AFTERNOON
     Route: 048
  2. ATENOLOL. [Concomitant]
     Active Substance: ATENOLOL
     Indication: BLOOD PRESSURE ABNORMAL
     Dosage: ONE IN THE MORNING
  3. AAS [Concomitant]
     Active Substance: ASPIRIN
     Indication: ARTERIAL OCCLUSIVE DISEASE
     Dosage: ONE IN THE MORNING
  4. XALATAN [Suspect]
     Active Substance: LATANOPROST
     Dosage: UNK
     Route: 047
     Dates: start: 2012
  5. OMEPRAZOLE. [Concomitant]
     Active Substance: OMEPRAZOLE
     Indication: GASTRIC DISORDER
     Dosage: ONE IN THE MORNING
     Route: 048
  6. VASTAREL [Concomitant]
     Active Substance: TRIMETAZIDINE DIHYDROCHLORIDE
     Indication: CHEST PAIN
     Dosage: UNK, 1X/DAY
  7. CELESTRAT [Concomitant]
     Indication: CHEST PAIN
     Dosage: UNK, 3X/DAY
  8. GLIFAGE [Concomitant]
     Active Substance: METFORMIN HYDROCHLORIDE
     Indication: BLOOD GLUCOSE ABNORMAL
     Dosage: ONE IN THE NIGHT

REACTIONS (3)
  - Prostatic disorder [Unknown]
  - Cardiac disorder [Not Recovered/Not Resolved]
  - Dysuria [Not Recovered/Not Resolved]
